FAERS Safety Report 9195917 (Version 1)
Quarter: 2013Q1

REPORT INFORMATION
  Report Type: Report from Study
  Country: US (occurrence: GB)
  Receive Date: 20130328
  Receipt Date: 20130328
  Transmission Date: 20140127
  Serious: Yes (Congenital Anomaly, Other)
  Sender: FDA-Public Use
  Company Number: US-BAYER-2013-034842

PATIENT
  Sex: Female

DRUGS (6)
  1. SIMVASTATIN [Suspect]
     Indication: HYPERCHOLESTEROLAEMIA
     Route: 064
  2. SIMVASTATIN [Suspect]
     Indication: HYPERCHOLESTEROLAEMIA
     Route: 064
  3. ACETYLSALICYLIC ACID [Suspect]
     Route: 064
  4. ACETYLSALICYLIC ACID [Suspect]
     Route: 064
  5. DILTIAZEM [Concomitant]
     Route: 064
  6. DILTIAZEM [Concomitant]
     Route: 064

REACTIONS (4)
  - Cleft lip [None]
  - Foetal growth restriction [None]
  - Premature baby [None]
  - Foetal exposure during pregnancy [None]
